FAERS Safety Report 9072602 (Version 1)
Quarter: 2013Q1

REPORT INFORMATION
  Report Type: Report from Study
  Country: US (occurrence: US)
  Receive Date: 20130129
  Receipt Date: 20130129
  Transmission Date: 20140127
  Serious: No
  Sender: FDA-Public Use
  Company Number: US-ABBOTT-12P-163-0929574-00

PATIENT
  Age: 32 Year
  Sex: Female

DRUGS (8)
  1. HUMIRA 40 MG/0.8 ML PEN [Suspect]
     Indication: CROHN^S DISEASE
     Dates: start: 20120312
  2. HUMIRA 40 MG/0.8 ML PEN [Suspect]
     Dates: start: 20120326
  3. HUMIRA 40 MG/0.8 ML PEN [Suspect]
  4. LOMOTIL [Concomitant]
     Indication: PRODUCT USED FOR UNKNOWN INDICATION
     Dosage: 4 PILLS PER DAY
  5. MULTIVITAMIN [Concomitant]
     Indication: PRODUCT USED FOR UNKNOWN INDICATION
  6. PROBIOTICS [Concomitant]
     Indication: PRODUCT USED FOR UNKNOWN INDICATION
  7. OXYCODONE [Concomitant]
     Indication: PAIN
     Dosage: EVERY ONCE IN A WHILE
  8. TINDAMAX [Concomitant]
     Indication: CROHN^S DISEASE
     Dosage: 500 MG TWICE PER DAY

REACTIONS (5)
  - Skin disorder [Not Recovered/Not Resolved]
  - Acne [Not Recovered/Not Resolved]
  - Injection site swelling [Not Recovered/Not Resolved]
  - Injection site papule [Not Recovered/Not Resolved]
  - Injection site erythema [Not Recovered/Not Resolved]
